FAERS Safety Report 12228882 (Version 2)
Quarter: 2016Q2

REPORT INFORMATION
  Report Type: Spontaneous
  Country: DE (occurrence: DE)
  Receive Date: 20160401
  Receipt Date: 20160602
  Transmission Date: 20160815
  Serious: Yes (Hospitalization)
  Sender: FDA-Public Use
  Company Number: PHHY2016DE039976

PATIENT
  Sex: Male
  Weight: 118 kg

DRUGS (7)
  1. RAMILICH [Concomitant]
     Active Substance: RAMIPRIL
     Indication: HYPERTENSION
     Dosage: UNK UNK, BID
     Route: 048
     Dates: start: 2011
  2. GLIVEC [Suspect]
     Active Substance: IMATINIB MESYLATE
     Indication: CHRONIC MYELOID LEUKAEMIA
     Dosage: 400 MG, QD
     Route: 065
     Dates: start: 20160127
  3. L-THYROX [Concomitant]
     Active Substance: LEVOTHYROXINE SODIUM
     Indication: HYPOTHYROIDISM
     Dosage: UNK UNK, QD
     Route: 048
  4. NOVAMINSULFON [Concomitant]
     Active Substance: METAMIZOLE
     Indication: SPINAL PAIN
     Dosage: UNK UNK, PRN
     Route: 048
     Dates: start: 2011
  5. ALLOPURINOL. [Concomitant]
     Active Substance: ALLOPURINOL
     Indication: HYPERURICAEMIA
     Dosage: UNK UNK, QD
     Route: 048
     Dates: start: 2011
  6. TASIGNA [Suspect]
     Active Substance: NILOTINIB
     Indication: CHRONIC MYELOID LEUKAEMIA
     Dosage: 1-0-2-0
     Route: 048
     Dates: start: 20150530, end: 201601
  7. PANTOPRAZOLE [Concomitant]
     Active Substance: PANTOPRAZOLE SODIUM
     Indication: GASTRIC DISORDER
     Dosage: UNK UNK, QD
     Route: 048
     Dates: start: 2011

REACTIONS (13)
  - Flatulence [Unknown]
  - Blood bilirubin increased [Unknown]
  - Pain in extremity [Unknown]
  - Muscle fatigue [Unknown]
  - Atelectasis [Unknown]
  - Lipase increased [Unknown]
  - Blood bilirubin unconjugated increased [Unknown]
  - Rash [Unknown]
  - Abdominal pain upper [Not Recovered/Not Resolved]
  - Fatigue [Unknown]
  - Pancreatitis acute [Not Recovered/Not Resolved]
  - Pleural effusion [Unknown]
  - Liver function test increased [Unknown]

NARRATIVE: CASE EVENT DATE: 2015
